FAERS Safety Report 9539613 (Version 1)
Quarter: 2013Q3

REPORT INFORMATION
  Report Type: Spontaneous
  Country: CA (occurrence: CA)
  Receive Date: 20130920
  Receipt Date: 20130920
  Transmission Date: 20140515
  Serious: Yes (Hospitalization, Other)
  Sender: FDA-Public Use
  Company Number: CA-009507513-1309CAN009050

PATIENT
  Age: 28 Year
  Sex: Female
  Weight: 66.67 kg

DRUGS (2)
  1. NUVARING [Suspect]
     Indication: PRODUCT USED FOR UNKNOWN INDICATION
     Dosage: 1 DF, QM
     Route: 067
  2. ANAPROX [Concomitant]
     Dosage: 275 MG, UNK
     Route: 065

REACTIONS (3)
  - Arrhythmia [Unknown]
  - Pulmonary embolism [Unknown]
  - Thrombophlebitis [Unknown]
